FAERS Safety Report 8795737 (Version 1)
Quarter: 2012Q4

REPORT INFORMATION
  Report Type: 
  Country: US (occurrence: US)
  Receive Date: 20120919
  Receipt Date: 20120919
  Transmission Date: 20130627
  Serious: No
  Sender: FDA-Public Use
  Company Number: US-B.I. PHARMACEUTICALS,INC./RIDGEFIELD-2012-BP-22232BP

PATIENT
  Sex: Male
  Weight: 116 kg

DRUGS (11)
  1. PRADAXA [Suspect]
     Indication: CEREBROVASCULAR ACCIDENT PROPHYLAXIS
     Dosage: 300 mg
     Route: 048
     Dates: start: 201207
  2. FLOMAX CAPSULES [Suspect]
     Indication: BENIGN PROSTATIC HYPERPLASIA
     Dosage: 0.4 mg
     Route: 048
     Dates: start: 2001
  3. ZANTAC 150 (RANITIDINE HYDROCHLORIDE) [Suspect]
     Indication: GASTROOESOPHAGEAL REFLUX DISEASE
     Dosage: 300 mg
     Route: 048
     Dates: start: 2010
  4. MULTAQ [Concomitant]
     Indication: ATRIAL FIBRILLATION
     Dosage: 800 mg
     Route: 048
     Dates: start: 201207
  5. ZOCOR [Concomitant]
     Indication: BLOOD CHOLESTEROL INCREASED
     Dosage: 20 mg
     Route: 048
     Dates: start: 2008
  6. BUMETANIDE [Concomitant]
     Dosage: 1 mg
     Route: 048
  7. NORVASC [Concomitant]
     Dosage: 5 mg
     Route: 048
     Dates: start: 2008
  8. ATENOLOL [Concomitant]
     Indication: CARDIAC DISORDER
     Dosage: 100 mg
     Route: 048
     Dates: start: 2008
  9. ACCUPRIL [Concomitant]
     Indication: HYPERTENSION
     Dosage: 25 mg
     Route: 048
     Dates: start: 2008
  10. IMDUR [Concomitant]
     Indication: ANGINA PECTORIS
     Dosage: 30 mg
     Route: 048
     Dates: start: 2009
  11. FLOVENT [Concomitant]
     Indication: BRONCHITIS
     Route: 055
     Dates: start: 201206

REACTIONS (2)
  - Haematuria [Not Recovered/Not Resolved]
  - Cystitis [Unknown]
